FAERS Safety Report 4335813-8 (Version None)
Quarter: 2004Q2

REPORT INFORMATION
  Report Type: 
  Country: None (occurrence: None)
  Receive Date: 20040409
  Receipt Date: 20040325
  Transmission Date: 20050107
  Serious: Yes (Other)
  Sender: FDA-Public Use
  Company Number: PHEH2004US03505

PATIENT
  Age: 49 Year
  Sex: Female

DRUGS (6)
  1. GLEEVEC [Suspect]
     Indication: CHRONIC MYELOID LEUKAEMIA
     Dosage: 800 MG, QD
     Route: 048
     Dates: start: 20031201
  2. HYDREA [Concomitant]
     Indication: WHITE BLOOD CELL COUNT INCREASED
     Dosage: 500 MG, QD
     Route: 048
  3. ZOLOFT [Concomitant]
     Indication: DEPRESSION
     Route: 048
  4. NORCO [Concomitant]
     Indication: ARTHRALGIA
     Route: 048
  5. GLEEVEC [Suspect]
     Dosage: 600 MG, QD
     Route: 048
  6. GLEEVEC [Suspect]
     Dosage: 800 MG, QD
     Route: 048

REACTIONS (10)
  - ARTHRALGIA [None]
  - DEPRESSION [None]
  - DRUG INEFFECTIVE [None]
  - DYSGEUSIA [None]
  - INSOMNIA [None]
  - NAUSEA [None]
  - PLATELET COUNT INCREASED [None]
  - RASH [None]
  - VOMITING [None]
  - WHITE BLOOD CELL COUNT INCREASED [None]
